FAERS Safety Report 17390691 (Version 3)
Quarter: 2020Q1

REPORT INFORMATION
  Report Type: Spontaneous
  Country: JP (occurrence: JP)
  Receive Date: 20200207
  Receipt Date: 20200302
  Transmission Date: 20200409
  Serious: Yes (Death, Life-Threatening, Hospitalization, Other)
  Sender: FDA-Public Use
  Company Number: JP-009507513-1912JPN000595J

PATIENT
  Age: 86 Year
  Sex: Male
  Weight: 72 kg

DRUGS (2)
  1. LIPITOR [Concomitant]
     Active Substance: ATORVASTATIN CALCIUM
     Dosage: UNK
     Route: 065
  2. KEYTRUDA [Suspect]
     Active Substance: PEMBROLIZUMAB
     Indication: MALIGNANT MELANOMA
     Dosage: 200 MILLIGRAM, Q3W
     Route: 041
     Dates: start: 20191113, end: 20191113

REACTIONS (18)
  - Cytomegalovirus viraemia [Unknown]
  - Atrioventricular block complete [Recovering/Resolving]
  - Rhabdomyolysis [Recovered/Resolved]
  - Malignant neoplasm progression [Unknown]
  - Bone marrow failure [Unknown]
  - Renal impairment [Unknown]
  - Blood iron decreased [Unknown]
  - Haemoglobin decreased [Unknown]
  - Nervous system disorder [Not Recovered/Not Resolved]
  - Cerebral infarction [Unknown]
  - Myasthenia gravis [Unknown]
  - Platelet count decreased [Unknown]
  - Neuropathy peripheral [Not Recovered/Not Resolved]
  - Hypoalbuminaemia [Unknown]
  - Cardiac failure [Unknown]
  - Immune-mediated myositis [Recovered/Resolved]
  - Death [Fatal]
  - Drug-induced liver injury [Recovered/Resolved]

NARRATIVE: CASE EVENT DATE: 20191201
